FAERS Safety Report 7074582-8 (Version None)
Quarter: 2010Q4

REPORT INFORMATION
  Report Type: 
  Country: None (occurrence: None)
  Receive Date: 20101029
  Receipt Date: 20100423
  Transmission Date: 20110411
  Serious: No
  Sender: FDA-Public Use
  Company Number: A0856475A

PATIENT
  Age: 12 Year
  Sex: Male

DRUGS (5)
  1. IMITREX [Suspect]
     Indication: MIGRAINE
     Dosage: 20MG AS REQUIRED
     Route: 045
     Dates: start: 20100413
  2. LAMICTAL [Concomitant]
  3. FLOVENT [Concomitant]
  4. POLYGAM S/D [Concomitant]
  5. TORADOL [Concomitant]

REACTIONS (1)
  - DRUG INEFFECTIVE [None]
